FAERS Safety Report 10234067 (Version 1)
Quarter: 2014Q1

REPORT INFORMATION
  Report Type: Spontaneous
  Country: US (occurrence: None)
  Receive Date: 20140306
  Receipt Date: 20140306
  Transmission Date: 20141002
  Serious: Yes (Hospitalization)
  Sender: FDA-Public Use
  Company Number: 163-21880-13111076

PATIENT
  Age: 72 Year
  Sex: Female
  Weight: 46.27 kg

DRUGS (6)
  1. REVLIMID (LENALIDOMIDE) (15 MILLIGRAM, CAPSULES) [Suspect]
     Indication: PLASMA CELL MYELOMA
     Dosage: 21 IN 28 DAYS
     Route: 048
     Dates: start: 20130925
  2. AMLODIPINE/BENAZEPRIL (AMLODIPINE BESYLATE W/BENAZEPRIL HYDROCHLOR) (UNKNOWN) [Concomitant]
  3. DEXAMETHASONE (DEXAMETHASONE) (UNKNOWN) [Concomitant]
  4. ACYCLOVIR (ACICLOVIR) (UNKNOWN) [Concomitant]
  5. METFORMIN (METFORMIN) (UNKNOWN) [Concomitant]
  6. GLYBURIDE (BLIBENCLAMIDE) (UNKNOWN) [Concomitant]

REACTIONS (5)
  - Dehydration [None]
  - Nausea [None]
  - Vomiting [None]
  - Fatigue [None]
  - Dizziness [None]
